FAERS Safety Report 4371115-1 (Version None)
Quarter: 2004Q2

REPORT INFORMATION
  Report Type: 
  Country: None (occurrence: None)
  Receive Date: 20040601
  Receipt Date: 20040524
  Transmission Date: 20050107
  Serious: Yes (Disabling, Other)
  Sender: FDA-Public Use
  Company Number: 2004-04-0303

PATIENT
  Age: 66 Year
  Sex: Female
  Weight: 69 kg

DRUGS (3)
  1. VIRAFERONPEG [Suspect]
     Indication: HEPATITIS C
     Dosage: 1.5 MCG/KG SUBCUTANEOUS
     Route: 058
     Dates: start: 20030131, end: 20040131
  2. REBETOL [Suspect]
     Indication: HEPATITIS C
     Dosage: ORAL
     Route: 048
     Dates: start: 20030101, end: 20040101
  3. ZOLOFT [Concomitant]

REACTIONS (4)
  - CATARACT [None]
  - DEPRESSION [None]
  - KERATITIS [None]
  - KERATOCONJUNCTIVITIS SICCA [None]
